FAERS Safety Report 7982087 (Version 3)
Quarter: 2016Q1

REPORT INFORMATION
  Report Type: Report from Study
  Country: JP (occurrence: JP)
  Receive Date: 20110609
  Receipt Date: 20160314
  Transmission Date: 20160526
  Serious: Yes (Death)
  Sender: FDA-Public Use
  Company Number: PHHY2009JP32995

PATIENT
  Sex: Male
  Weight: 56 kg

DRUGS (8)
  1. METHYCOBAL [Concomitant]
     Active Substance: METHYLCOBALAMIN
     Indication: MYELOFIBROSIS
     Dosage: 1500 MG, UNK
     Route: 048
     Dates: start: 20081024, end: 20081229
  2. RED BLOOD CELLS, CONCENTRATED [Concomitant]
     Active Substance: HUMAN RED BLOOD CELL
     Indication: PRODUCT USED FOR UNKNOWN INDICATION
     Dosage: 2 UNITS, QW (EVERY WEEK)
     Route: 065
     Dates: start: 20071030, end: 20090104
  3. PLATELETS [Concomitant]
     Active Substance: HUMAN PLATELET, ALLOGENIC
     Indication: PRODUCT USED FOR UNKNOWN INDICATION
     Dosage: 10 UNIT EVERY WEEKS (QW)
     Route: 065
     Dates: start: 20070122, end: 20081231
  4. PROMAC [Concomitant]
     Active Substance: NITROFURANTOIN
     Indication: PRODUCT USED FOR UNKNOWN INDICATION
     Dosage: 1 G, UNK
     Route: 048
     Dates: start: 20071108
  5. ZYLORIC [Concomitant]
     Active Substance: ALLOPURINOL
     Indication: MYELOFIBROSIS
     Dosage: 200 MG, UNK
     Route: 048
     Dates: start: 20081024, end: 20081229
  6. ICL670A [Suspect]
     Active Substance: DEFERASIROX
     Indication: IRON OVERLOAD
     Dosage: 1000 MG, QD
     Route: 048
     Dates: start: 20081028, end: 20081229
  7. OXYCONTIN [Concomitant]
     Active Substance: OXYCODONE HYDROCHLORIDE
     Indication: MYELOFIBROSIS
     Dosage: 10 MG, UNK
     Route: 048
     Dates: start: 20081201, end: 20081229
  8. NORVASC [Concomitant]
     Active Substance: AMLODIPINE BESYLATE
     Indication: MYELOFIBROSIS
     Dosage: 5 MG, UNK
     Route: 048
     Dates: start: 20081014, end: 20081229

REACTIONS (2)
  - Disease progression [Fatal]
  - Cerebral haemorrhage [Fatal]
